FAERS Safety Report 12280161 (Version 1)
Quarter: 2016Q2

REPORT INFORMATION
  Report Type: Report from Study
  Country: US (occurrence: US)
  Receive Date: 20160419
  Receipt Date: 20160419
  Transmission Date: 20160815
  Serious: Yes (Other)
  Sender: FDA-Public Use
  Company Number: US-AMGEN-USASL2016039596

PATIENT
  Age: 63 Year
  Sex: Female
  Weight: 81.63 kg

DRUGS (2)
  1. REPATHA [Suspect]
     Active Substance: EVOLOCUMAB
     Indication: TYPE V HYPERLIPIDAEMIA
  2. REPATHA [Suspect]
     Active Substance: EVOLOCUMAB
     Indication: TYPE IIA HYPERLIPIDAEMIA
     Dosage: 140 MG, Q2WK
     Route: 058
     Dates: start: 20151207, end: 20160318

REACTIONS (12)
  - Myalgia [Recovered/Resolved]
  - Feeling abnormal [Unknown]
  - Injection site erythema [Unknown]
  - Pruritus generalised [Recovered/Resolved]
  - Malaise [Recovered/Resolved]
  - Injection site bruising [Unknown]
  - Injection site pruritus [Unknown]
  - Influenza [Recovered/Resolved]
  - Blood pressure increased [Unknown]
  - Gait disturbance [Recovered/Resolved]
  - Back pain [Recovered/Resolved]
  - Arthralgia [Recovered/Resolved]
